FAERS Safety Report 10675692 (Version 1)
Quarter: 2014Q4

REPORT INFORMATION
  Report Type: Spontaneous
  Country: US (occurrence: US)
  Receive Date: 20141224
  Receipt Date: 20141224
  Transmission Date: 20150529
  Serious: No
  Sender: FDA-Public Use
  Company Number: US-BAUSCH-SYM-2014-16403

PATIENT
  Age: 74 Year
  Sex: Female
  Weight: 69.92 kg

DRUGS (1)
  1. XENAZINE [Suspect]
     Active Substance: TETRABENAZINE
     Indication: DYSKINESIA
     Route: 048
     Dates: start: 201401

REACTIONS (3)
  - Dysarthria [Unknown]
  - Balance disorder [Unknown]
  - Medication error [Unknown]

NARRATIVE: CASE EVENT DATE: 201401
